FAERS Safety Report 19177883 (Version 2)
Quarter: 2021Q3

REPORT INFORMATION
  Report Type: Spontaneous
  Country: JP (occurrence: JP)
  Receive Date: 20210426
  Receipt Date: 20210916
  Transmission Date: 20211014
  Serious: Yes (Other)
  Sender: FDA-Public Use
  Company Number: JP-AMGEN-JPNSP2021061214

PATIENT

DRUGS (3)
  1. EVENITY [Suspect]
     Active Substance: ROMOSOZUMAB-AQQG
     Indication: OSTEOPOROSIS
     Dosage: 210 MILLIGRAM, QMO
     Route: 058
     Dates: start: 20190930
  2. DENOSUMAB [Suspect]
     Active Substance: DENOSUMAB
     Indication: OSTEOPOROSIS
     Route: 065
  3. EVENITY [Suspect]
     Active Substance: ROMOSOZUMAB-AQQG

REACTIONS (28)
  - Anaesthesia [Unknown]
  - Fatigue [Unknown]
  - Dysphoria [Unknown]
  - Radius fracture [Unknown]
  - Tartrate-resistant acid phosphatase decreased [Unknown]
  - Injection site swelling [Unknown]
  - Injection site erythema [Unknown]
  - Osteonecrosis [Unknown]
  - Facial discomfort [Unknown]
  - Spinal fracture [Unknown]
  - Breast cancer recurrent [Unknown]
  - Hypoaesthesia [Unknown]
  - Tibia fracture [Unknown]
  - Arrhythmia [Unknown]
  - Hypozincaemia [Unknown]
  - Blood pressure increased [Unknown]
  - Bloody discharge [Unknown]
  - Lower limb fracture [Unknown]
  - Injection site pain [Unknown]
  - Blood calcium decreased [Unknown]
  - Pneumothorax [Unknown]
  - Adverse event [Unknown]
  - Upper limb fracture [Unknown]
  - Serum procollagen type I N-terminal propeptide increased [Unknown]
  - Hypocalcaemia [Unknown]
  - Rash [Unknown]
  - Pyrexia [Unknown]
  - Headache [Unknown]

NARRATIVE: CASE EVENT DATE: 2020
